FAERS Safety Report 13910329 (Version 1)
Quarter: 2017Q3

REPORT INFORMATION
  Report Type: Spontaneous
  Country: US (occurrence: None)
  Receive Date: 20170822
  Receipt Date: 20170822
  Transmission Date: 20171127
  Serious: Yes (Other)
  Sender: FDA-Public Use
  Company Number: None

PATIENT
  Age: 62 Year
  Sex: Female
  Weight: 65.77 kg

DRUGS (1)
  1. MAXIMUM STRENTH NASAL [Suspect]
     Active Substance: OXYMETAZOLINE HYDROCHLORIDE
     Indication: NASAL CONGESTION
     Dosage: 2 SPRAYS EACH NOSTRIL ONCE SPRAYED IN NOSTRILS
     Dates: start: 20170622, end: 20170622

REACTIONS (1)
  - Rhinalgia [None]

NARRATIVE: CASE EVENT DATE: 20170622
